FAERS Safety Report 5148765-8 (Version None)
Quarter: 2006Q4

REPORT INFORMATION
  Report Type: 
  Country: None (occurrence: None)
  Receive Date: 20061113
  Receipt Date: 20060926
  Transmission Date: 20070319
  Serious: Yes (Other)
  Sender: FDA-Public Use
  Company Number: PHRM2006FR02662

PATIENT
  Age: 78 Year
  Sex: Female
  Weight: 50 kg

DRUGS (3)
  1. ZOMETA [Suspect]
     Indication: METASTASES TO BONE
     Dosage: 4 MG, QMO
     Route: 042
     Dates: start: 20030901, end: 20040301
  2. AREDIA [Suspect]
     Indication: METASTASES TO BONE
     Dosage: 75 MG, QMO
     Route: 042
     Dates: start: 20000101, end: 20030801
  3. AREDIA [Suspect]
     Dosage: 75 MG QMO
     Route: 042
     Dates: start: 20040401, end: 20060801

REACTIONS (4)
  - ABSCESS [None]
  - GINGIVITIS [None]
  - OSTEONECROSIS [None]
  - TOOTH EXTRACTION [None]
